FAERS Safety Report 8997026 (Version 1)
Quarter: 2012Q4

REPORT INFORMATION
  Report Type: Spontaneous
  Country: GB (occurrence: None)
  Receive Date: 20121221
  Receipt Date: 20121221
  Transmission Date: 20130627
  Serious: Yes (Other)
  Sender: FDA-Public Use
  Company Number: AUR-APL-2012-05346

PATIENT
  Age: 55 Year
  Sex: Female

DRUGS (4)
  1. RIBAVIRIN (RIBAVIRIN) [Suspect]
     Indication: HEPATITIS C
     Route: 048
     Dates: start: 20120706
  2. TELAPREVIR (INCIVO) (TELAPREVIR) [Suspect]
     Indication: HEPATITIS C
     Dates: start: 20120803
  3. TELAPREVIR (INCIVO) (TELAPREVIR) [Suspect]
     Indication: HEPATITIS C
     Route: 048
  4. PEGINTERFERON ALFA-2B (PEGINTERFERON ALFA-2B) [Suspect]
     Indication: HEPATITIS C
     Route: 058

REACTIONS (10)
  - Anaemia [None]
  - Depression [None]
  - Dry skin [None]
  - Pruritus [None]
  - Nausea [None]
  - Vomiting [None]
  - Anorectal discomfort [None]
  - Lethargy [None]
  - Proctalgia [None]
  - Skin lesion [None]
